FAERS Safety Report 5226260-5 (Version None)
Quarter: 2007Q1

REPORT INFORMATION
  Report Type: 
  Country: None (occurrence: None)
  Receive Date: 20070201
  Receipt Date: 20070124
  Transmission Date: 20070707
  Serious: Yes (Other)
  Sender: FDA-Public Use
  Company Number: 2006AP04138

PATIENT
  Age: 21699 Day
  Sex: Female
  Weight: 38 kg

DRUGS (10)
  1. ANAPEINE [Suspect]
     Indication: LOCAL ANAESTHESIA
     Route: 053
     Dates: start: 20060721, end: 20060721
  2. XYLOCAINE [Suspect]
     Indication: LOCAL ANAESTHESIA
     Route: 053
     Dates: start: 20060721, end: 20060721
  3. LASIX [Concomitant]
     Indication: HYPERTENSION
     Route: 048
     Dates: end: 20060720
  4. NU-LOTAN [Concomitant]
     Indication: HYPERTENSION
     Route: 048
     Dates: end: 20060720
  5. ALFAROL [Concomitant]
     Indication: DIALYSIS
     Route: 048
     Dates: end: 20060720
  6. SELBEX [Concomitant]
     Indication: DIALYSIS
     Route: 048
     Dates: end: 20060720
  7. TANKARU [Concomitant]
     Indication: DIALYSIS
     Route: 048
     Dates: end: 20060720
  8. DIPRIVAN [Concomitant]
     Indication: INDUCTION OF ANAESTHESIA
     Route: 042
     Dates: start: 20060721, end: 20060721
  9. SEVOFLURANE [Concomitant]
     Indication: MAINTENANCE OF ANAESTHESIA
     Route: 055
     Dates: start: 20060721, end: 20060721
  10. FENTANEST [Concomitant]
     Indication: MAINTENANCE OF ANAESTHESIA
     Dates: start: 20060721, end: 20060721

REACTIONS (3)
  - CONVULSION [None]
  - DRUG TOXICITY [None]
  - TACHYCARDIA [None]
